FAERS Safety Report 5387018-X (Version None)
Quarter: 2007Q3

REPORT INFORMATION
  Report Type: 
  Country: None (occurrence: None)
  Receive Date: 20070713
  Receipt Date: 20070702
  Transmission Date: 20080115
  Serious: Yes (Hospitalization)
  Sender: FDA-Public Use
  Company Number: FR-PFIZER INC-2007056756

PATIENT

DRUGS (4)
  1. VIRACEPT [Suspect]
     Indication: HIV INFECTION
  2. EPIVIR [Suspect]
     Route: 048
  3. RETROVIR [Suspect]
     Indication: HIV INFECTION
     Route: 048
  4. MORPHINE [Suspect]
     Route: 048

REACTIONS (1)
  - DRUG DEPENDENCE [None]
